FAERS Safety Report 23096308 (Version 2)
Quarter: 2023Q4

REPORT INFORMATION
  Report Type: Report from Study
  Country: US (occurrence: US)
  Receive Date: 20231023
  Receipt Date: 20231027
  Transmission Date: 20240110
  Serious: No
  Sender: FDA-Public Use
  Company Number: US-002147023-NVSC2023US223340

PATIENT
  Sex: Male
  Weight: 99.79 kg

DRUGS (1)
  1. COSENTYX [Suspect]
     Active Substance: SECUKINUMAB
     Indication: Psoriasis
     Dosage: UNK
     Route: 065

REACTIONS (10)
  - Pigmentation disorder [Unknown]
  - Arthropathy [Unknown]
  - Pruritus [Unknown]
  - Arthralgia [Unknown]
  - Onychalgia [Unknown]
  - Haematocrit increased [Unknown]
  - Weight increased [Unknown]
  - Body mass index increased [Unknown]
  - Psoriasis [Unknown]
  - Drug ineffective [Unknown]
